FAERS Safety Report 6097851-7 (Version None)
Quarter: 2009Q1

REPORT INFORMATION
  Report Type: 
  Country: None (occurrence: None)
  Receive Date: 20090225
  Receipt Date: 20090216
  Transmission Date: 20090719
  Serious: Yes (Other)
  Sender: FDA-Public Use
  Company Number: 2009SP003489

PATIENT
  Age: 69 Year
  Sex: Male

DRUGS (1)
  1. INTEGRILIN [Suspect]
     Dosage: 12 ML; QH; IV
     Route: 042
     Dates: start: 20080408, end: 20080608

REACTIONS (3)
  - BRADYCARDIA [None]
  - HYPOTENSION [None]
  - RASH ERYTHEMATOUS [None]
